FAERS Safety Report 14147875 (Version 6)
Quarter: 2018Q4

REPORT INFORMATION
  Report Type: Spontaneous
  Country: DE (occurrence: DE)
  Receive Date: 20171101
  Receipt Date: 20181018
  Transmission Date: 20190204
  Serious: Yes (Other)
  Sender: FDA-Public Use
  Company Number: DE-SUN PHARMACEUTICAL INDUSTRIES LTD-2017RR-153604

PATIENT
  Age: 68 Year
  Sex: Female

DRUGS (4)
  1. IMATINIB. [Suspect]
     Active Substance: IMATINIB MESYLATE
     Indication: CHRONIC MYELOID LEUKAEMIA
     Dosage: UNK
     Route: 065
  2. BOSUTINIB [Suspect]
     Active Substance: BOSUTINIB
     Indication: CHRONIC MYELOID LEUKAEMIA
     Dosage: 300 MILLIGRAM DAILY;
     Route: 065
  3. BOSUTINIB [Suspect]
     Active Substance: BOSUTINIB
     Dosage: 400 MILLIGRAM DAILY;
     Route: 065
  4. HYDROXYUREA. [Concomitant]
     Active Substance: HYDROXYUREA
     Indication: CHRONIC MYELOID LEUKAEMIA
     Dosage: UNK ()
     Route: 065

REACTIONS (7)
  - Philadelphia chromosome positive [Recovering/Resolving]
  - Weight decreased [Unknown]
  - Oedema peripheral [Unknown]
  - Concomitant disease aggravated [Unknown]
  - Electrocardiogram QT prolonged [Recovering/Resolving]
  - Diarrhoea [Recovering/Resolving]
  - Nausea [Unknown]
